FAERS Safety Report 11290298 (Version 1)
Quarter: 2015Q3

REPORT INFORMATION
  Report Type: Spontaneous
  Country: GB (occurrence: GB)
  Receive Date: 20150722
  Receipt Date: 20150722
  Transmission Date: 20151125
  Serious: Yes (Hospitalization, Other)
  Sender: FDA-Public Use
  Company Number: GB-HOSPIRA-2945251

PATIENT
  Age: 77 Year
  Sex: Male

DRUGS (7)
  1. MABTHERA [Suspect]
     Active Substance: RITUXIMAB
     Indication: DIFFUSE LARGE B-CELL LYMPHOMA
     Dosage: THERAPY TEMPORARILY INTERRUPTED; LAST DOSE PRIOR TO SAE: 20 FEB 2009
     Route: 042
     Dates: start: 20090220, end: 20090312
  2. DOXORUBICIN HYDROCHLORIDE. [Suspect]
     Active Substance: DOXORUBICIN HYDROCHLORIDE
     Indication: B-CELL LYMPHOMA
     Dosage: THERAPY TEMPORARILY INTERRUPTED
     Route: 040
     Dates: start: 20090220, end: 20090312
  3. CYCLOPHOSPHAMIDE. [Suspect]
     Active Substance: CYCLOPHOSPHAMIDE
     Indication: B-CELL LYMPHOMA
     Dosage: THERAPY TEMPORARILY INTERRUPTED
     Route: 040
     Dates: start: 20090220, end: 20090312
  4. PREDNISOLONE. [Suspect]
     Active Substance: PREDNISOLONE
     Indication: B-CELL LYMPHOMA
     Dosage: LAST DOSE PRIOR TO SAE: 24 FEB 2009,?TEMPORARILY INTERRUPTED; 1-5 EVERY 21 DAYS
     Route: 048
     Dates: start: 20090220, end: 20090312
  5. ALLOPURINOL. [Concomitant]
     Active Substance: ALLOPURINOL
     Indication: PRODUCT USED FOR UNKNOWN INDICATION
     Route: 065
     Dates: start: 20090218, end: 20090313
  6. PLACEBO [Suspect]
     Active Substance: UNSPECIFIED INGREDIENT
     Indication: DIFFUSE LARGE B-CELL LYMPHOMA
     Dosage: THERAPY TEMPORARILY INTERRUPTED; LAST DOSE PRIOR TO SAE: 19 FEB 2009
     Route: 042
     Dates: start: 20090219, end: 20090312
  7. VINCRISTINE SULFATE. [Suspect]
     Active Substance: VINCRISTINE SULFATE
     Indication: B-CELL LYMPHOMA
     Route: 042

REACTIONS (2)
  - Urinary tract infection [Unknown]
  - Escherichia sepsis [Recovered/Resolved]

NARRATIVE: CASE EVENT DATE: 20090308
